FAERS Safety Report 19419232 (Version 1)
Quarter: 2021Q2

REPORT INFORMATION
  Report Type: Spontaneous
  Country: CA (occurrence: CA)
  Receive Date: 20210615
  Receipt Date: 20210615
  Transmission Date: 20210717
  Serious: Yes (Other)
  Sender: FDA-Public Use
  Company Number: CA-MYLANLABS-2021M1034558

PATIENT
  Sex: Female

DRUGS (1)
  1. OGIVRI [Suspect]
     Active Substance: TRASTUZUMAB-DKST
     Indication: BREAST CANCER METASTATIC
     Dosage: 369 MILLIGRAM, Q3W
     Route: 042
     Dates: start: 20200903, end: 20210514

REACTIONS (1)
  - Neoplasm progression [Unknown]
